FAERS Safety Report 5284660-1 (Version None)
Quarter: 2007Q2

REPORT INFORMATION
  Report Type: 
  Country: None (occurrence: None)
  Receive Date: 20070403
  Receipt Date: 20070326
  Transmission Date: 20071010
  Serious: Yes (Other)
  Sender: FDA-Public Use
  Company Number: JP-ROCHE-486871

PATIENT
  Age: 11 Year
  Sex: Male
  Weight: 25 kg

DRUGS (1)
  1. TAMIFLU [Suspect]
     Dosage: DOSE FORM REPORTED AS DRY SYRUP. DRUG REPORTED AS TAMIFLU DRY SYRUP 3%.
     Route: 048
     Dates: start: 20070210, end: 20070210

REACTIONS (2)
  - ABNORMAL BEHAVIOUR [None]
  - AGITATION [None]
